FAERS Safety Report 15204409 (Version 1)
Quarter: 2018Q3

REPORT INFORMATION
  Report Type: Report from Study
  Country: IT (occurrence: IT)
  Receive Date: 20180726
  Receipt Date: 20180726
  Transmission Date: 20181010
  Serious: Yes (Hospitalization)
  Sender: FDA-Public Use
  Company Number: IT-MYLANLABS-2018M1055169

PATIENT
  Age: 36 Year
  Sex: Male

DRUGS (1)
  1. TRAMADOL. [Suspect]
     Active Substance: TRAMADOL
     Indication: CONTUSION
     Dosage: 150 GTT, TOTAL
     Route: 048
     Dates: start: 20180125, end: 20180125

REACTIONS (6)
  - Tremor [Recovered/Resolved]
  - Medication error [Recovered/Resolved]
  - Device use error [Recovered/Resolved]
  - Adverse event [Recovered/Resolved]
  - Nausea [Recovered/Resolved]
  - Vomiting [Recovered/Resolved]

NARRATIVE: CASE EVENT DATE: 20180125
